FAERS Safety Report 24007198 (Version 1)
Quarter: 2024Q2

REPORT INFORMATION
  Report Type: Spontaneous
  Country: DE (occurrence: DE)
  Receive Date: 20240624
  Receipt Date: 20240624
  Transmission Date: 20240715
  Serious: Yes (Death, Life-Threatening, Hospitalization, Other)
  Sender: FDA-Public Use
  Company Number: DE-BoehringerIngelheim-2024-BI-035654

PATIENT
  Sex: Male

DRUGS (1)
  1. JARDIANCE [Suspect]
     Active Substance: EMPAGLIFLOZIN
     Indication: Cardiac failure
     Dosage: DAILY DOSE: 10 MILLIGRAM(S), FORM STRENGTH: 10 MILLIGRAM

REACTIONS (2)
  - Death [Fatal]
  - Renal impairment [Unknown]

NARRATIVE: CASE EVENT DATE: 20240301
